FAERS Safety Report 20568606 (Version 1)
Quarter: 2022Q1

REPORT INFORMATION
  Report Type: Spontaneous
  Country: US (occurrence: None)
  Receive Date: 20220308
  Receipt Date: 20220308
  Transmission Date: 20220423
  Serious: No
  Sender: FDA-Public Use
  Company Number: None

PATIENT
  Age: 76 Year
  Sex: Female
  Weight: 60.75 kg

DRUGS (1)
  1. HIZENTRA [Suspect]
     Active Substance: HUMAN IMMUNOGLOBULIN G
     Indication: Immunodeficiency common variable
     Dosage: OTHER FREQUENCY : WEEKLY;?
     Route: 058

REACTIONS (5)
  - Gait disturbance [None]
  - Contusion [None]
  - Infusion related reaction [None]
  - Influenza like illness [None]
  - Nausea [None]

NARRATIVE: CASE EVENT DATE: 20220307
